FAERS Safety Report 4290150-5 (Version None)
Quarter: 2004Q1

REPORT INFORMATION
  Report Type: 
  Country: None (occurrence: None)
  Receive Date: 20040206
  Receipt Date: 20040129
  Transmission Date: 20041129
  Serious: Yes (Other)
  Sender: FDA-Public Use
  Company Number: 2004196634GB

PATIENT
  Age: 52 Year
  Sex: Male

DRUGS (7)
  1. CAMPTOSAR [Suspect]
     Indication: GLIOMA
     Dosage: IV
     Route: 042
     Dates: start: 20011106, end: 20020416
  2. TEMODAL [Suspect]
     Indication: GLIOMA
     Dosage: 145 MG, ORAL; 380 MG, ORAL; 145 MG, ORAL; 100 MG, ORAL
     Route: 048
     Dates: start: 20000622, end: 20001008
  3. TEMODAL [Suspect]
     Indication: GLIOMA
     Dosage: 145 MG, ORAL; 380 MG, ORAL; 145 MG, ORAL; 100 MG, ORAL
     Route: 048
     Dates: start: 20001209, end: 20010213
  4. TEMODAL [Suspect]
     Indication: GLIOMA
     Dosage: 145 MG, ORAL; 380 MG, ORAL; 145 MG, ORAL; 100 MG, ORAL
     Route: 048
     Dates: start: 20011106, end: 20020319
  5. TEMODAL [Suspect]
     Indication: GLIOMA
     Dosage: 145 MG, ORAL; 380 MG, ORAL; 145 MG, ORAL; 100 MG, ORAL
     Route: 048
     Dates: start: 20020409, end: 20020416
  6. RADIATION (THERAPY) [Suspect]
  7. SOLPADOL [Concomitant]

REACTIONS (3)
  - ACUTE MYELOID LEUKAEMIA [None]
  - MALIGNANT NEOPLASM PROGRESSION [None]
  - NEUTROPENIA [None]
